FAERS Safety Report 10603163 (Version 4)
Quarter: 2015Q1

REPORT INFORMATION
  Report Type: Spontaneous
  Country: US (occurrence: US)
  Receive Date: 20141124
  Receipt Date: 20150204
  Transmission Date: 20150720
  Serious: No
  Sender: FDA-Public Use
  Company Number: US-PFIZER INC-2014322142

PATIENT
  Age: 85 Year
  Sex: Female

DRUGS (9)
  1. CRESTOR [Concomitant]
     Active Substance: ROSUVASTATIN CALCIUM
     Dosage: 20 MG, UNK
  2. LOTREL [Concomitant]
     Active Substance: AMLODIPINE BESYLATE\BENAZEPRIL HYDROCHLORIDE
     Indication: BLOOD PRESSURE
     Dosage: UNK (AMLODIPINE-5MG+BENAZEPRIL HYDROCHLORIDEL-20 MG)
  3. LYRICA [Suspect]
     Active Substance: PREGABALIN
     Indication: PAIN IN EXTREMITY
  4. TOPROL XL [Concomitant]
     Active Substance: METOPROLOL SUCCINATE
     Dosage: 50 MG, UNK
  5. BENAZEPRIL AND HYDROCHLOROTHIAZIDE [Concomitant]
     Active Substance: BENAZEPRIL HYDROCHLORIDE\HYDROCHLOROTHIAZIDE
     Dosage: UNK (BENAZEPRIL/HCTZ 20-25 MG)
  6. LYRICA [Suspect]
     Active Substance: PREGABALIN
     Indication: SCIATICA
     Dosage: 50 MG, (1 CAP) 3X/DAY
     Dates: start: 20141119, end: 20141119
  7. LYRICA [Suspect]
     Active Substance: PREGABALIN
     Indication: BACK DISORDER
     Dosage: 50 MG, 3X/DAY
  8. ASPIRIN. [Concomitant]
     Active Substance: ASPIRIN
     Dosage: 81 MG, UNK
  9. LOTENSIN [Concomitant]
     Active Substance: BENAZEPRIL HYDROCHLORIDE
     Dosage: UNK (1/2)

REACTIONS (4)
  - Drug ineffective [Unknown]
  - Dizziness [Not Recovered/Not Resolved]
  - Somnolence [Recovered/Resolved]
  - Balance disorder [Unknown]

NARRATIVE: CASE EVENT DATE: 20141119
